FAERS Safety Report 23388741 (Version 3)
Quarter: 2024Q1

REPORT INFORMATION
  Report Type: Report from Study
  Country: CN (occurrence: CN)
  Receive Date: 20240110
  Receipt Date: 20240129
  Transmission Date: 20240410
  Serious: Yes (Other)
  Sender: FDA-Public Use
  Company Number: CN-002147023-NVSC2024CN001869

PATIENT
  Age: 70 Year
  Sex: Female

DRUGS (20)
  1. COSENTYX [Suspect]
     Active Substance: SECUKINUMAB
     Indication: Psoriasis
     Dosage: 300 MG
     Route: 058
     Dates: start: 20220928
  2. COSENTYX [Suspect]
     Active Substance: SECUKINUMAB
     Dosage: 300 MG
     Route: 058
     Dates: start: 20221027
  3. COSENTYX [Suspect]
     Active Substance: SECUKINUMAB
     Dosage: 0 MG
     Route: 058
     Dates: start: 20221207
  4. COSENTYX [Suspect]
     Active Substance: SECUKINUMAB
     Dosage: 0 MG
     Route: 058
     Dates: start: 20230131
  5. COSENTYX [Suspect]
     Active Substance: SECUKINUMAB
     Dosage: UNK
     Route: 065
  6. RUPATADINE FUMARATE [Concomitant]
     Active Substance: RUPATADINE FUMARATE
     Indication: Psoriasis
     Dosage: 10 MG
     Route: 048
     Dates: start: 20220425, end: 202205
  7. CELECOXIB [Concomitant]
     Active Substance: CELECOXIB
     Indication: Psoriasis
     Dosage: 1 DOSAGE FORM
     Route: 048
     Dates: start: 20220821, end: 20220927
  8. METHOTREXATE [Concomitant]
     Active Substance: METHOTREXATE
     Indication: Psoriasis
     Dosage: 7.5 MG
     Route: 048
     Dates: start: 20220821, end: 20220927
  9. EBASTINE [Concomitant]
     Active Substance: EBASTINE
     Indication: Rheumatoid arthritis
     Dosage: 10 MG
     Route: 048
     Dates: start: 20221102, end: 20221111
  10. AMOXICILLIN AND CLAVULANATE POTASSIUM [Concomitant]
     Active Substance: AMOXICILLIN\CLAVULANATE POTASSIUM
     Indication: Rheumatoid arthritis
     Dosage: 0.4 G
     Route: 048
     Dates: start: 20031103, end: 20221108
  11. TEPRENONE [Concomitant]
     Active Substance: TEPRENONE
     Indication: Rheumatoid arthritis
     Dosage: 50 MG
     Route: 048
     Dates: start: 20221103, end: 20221121
  12. OSELTAMIVIR PHOSPHATE [Concomitant]
     Active Substance: OSELTAMIVIR PHOSPHATE
     Indication: Rheumatoid arthritis
     Dosage: 75 MG
     Route: 048
     Dates: start: 20221103, end: 20221111
  13. DEXAMETHASONE SODIUM PHOSPHATE [Concomitant]
     Active Substance: DEXAMETHASONE PHOSPHATE\DEXAMETHASONE SODIUM PHOSPHATE
     Indication: Rheumatoid arthritis
     Dosage: 5 MG
     Route: 040
     Dates: start: 20221105, end: 20221106
  14. SODIUM CHLORIDE [Concomitant]
     Active Substance: SODIUM CHLORIDE
     Indication: Rheumatoid arthritis
     Dosage: 100 ML
     Route: 041
     Dates: start: 20221107, end: 20221121
  15. CEFOPERAZONE SODIUM\SULBACTAM SODIUM [Concomitant]
     Active Substance: CEFOPERAZONE SODIUM\SULBACTAM SODIUM
     Indication: Rheumatoid arthritis
     Dosage: 3 G
     Route: 041
     Dates: start: 20221108, end: 20221111
  16. LORATADINE [Concomitant]
     Active Substance: LORATADINE
     Indication: Rheumatoid arthritis
     Dosage: 10 MG
     Route: 048
     Dates: start: 20221102, end: 20221111
  17. ALBUMIN HUMAN [Concomitant]
     Active Substance: ALBUMIN HUMAN
     Indication: Rheumatoid arthritis
     Dosage: 10 G
     Route: 041
     Dates: start: 20221110, end: 20221110
  18. FUROSEMIDE [Concomitant]
     Active Substance: FUROSEMIDE
     Indication: Rheumatoid arthritis
     Dosage: 20 MG
     Route: 040
     Dates: start: 20221110, end: 20221110
  19. DOMPERIDONE [Concomitant]
     Active Substance: DOMPERIDONE
     Indication: Rheumatoid arthritis
     Dosage: 10 MG
     Route: 048
     Dates: start: 20221111, end: 20221121
  20. SACCHAROMYCES CEREVISIAE [Concomitant]
     Active Substance: SACCHAROMYCES CEREVISIAE
     Indication: Rheumatoid arthritis
     Dosage: 0.25 G (SACHETS)
     Route: 048
     Dates: start: 20221116, end: 20221121

REACTIONS (8)
  - Secondary thrombocytosis [Recovering/Resolving]
  - Pneumonia [Recovering/Resolving]
  - Hypoproteinaemia [Recovering/Resolving]
  - Pleural effusion [Recovering/Resolving]
  - Pulmonary pneumatocele [Recovering/Resolving]
  - Hepatic function abnormal [Recovering/Resolving]
  - Pyrexia [Recovered/Resolved]
  - Eosinophil count increased [Recovering/Resolving]

NARRATIVE: CASE EVENT DATE: 20221031
